FAERS Safety Report 8583177-6 (Version None)
Quarter: 2012Q3

REPORT INFORMATION
  Report Type: 
  Country: None (occurrence: None)
  Receive Date: 20120727
  Receipt Date: 20120718
  Transmission Date: 20120928
  Serious: Yes (Life-Threatening, Hospitalization)
  Sender: FDA-Public Use
  Company Number: 2012AP002152

PATIENT
  Age: 39 Year
  Sex: Male

DRUGS (11)
  1. PANTOPRAZOLE SODIUM [Concomitant]
  2. ACYCLOVIR SODIUM [Concomitant]
  3. CHLORPHENIRAMINE MALEATE [Concomitant]
  4. GANCICLOVIR [Concomitant]
  5. HALOPERIDOL [Concomitant]
  6. ALLOPURINOL [Suspect]
     Indication: GOUT
     Dosage: 300 MG;TAB;PO;QD
     Route: 048
  7. INDOMETHACIN [Concomitant]
  8. METAMIZOLE (METAMIZOLE) [Concomitant]
  9. ENOXAPARIN SODIUM [Concomitant]
  10. DIPHENHYDRAMINE HCL [Concomitant]
  11. PHENYTOIN (PHENYTOIN) [Concomitant]

REACTIONS (9)
  - CONVULSION [None]
  - HEADACHE [None]
  - LETHARGY [None]
  - RENAL FAILURE [None]
  - PYREXIA [None]
  - RASH PRURITIC [None]
  - MALAISE [None]
  - MYALGIA [None]
  - LIVER FUNCTION TEST ABNORMAL [None]
